FAERS Safety Report 9407139 (Version 1)
Quarter: 2013Q3

REPORT INFORMATION
  Report Type: Spontaneous
  Country: US (occurrence: US)
  Receive Date: 20130718
  Receipt Date: 20130718
  Transmission Date: 20140515
  Serious: No
  Sender: FDA-Public Use
  Company Number: US-BAYER-2013-086266

PATIENT
  Age: 64 Year
  Sex: Male

DRUGS (1)
  1. PRECOSE [Suspect]
     Dosage: 25 MG, TID

REACTIONS (2)
  - Fatigue [None]
  - Insomnia [None]
